FAERS Safety Report 10015675 (Version 1)
Quarter: 2014Q1

REPORT INFORMATION
  Report Type: Spontaneous
  Country: US (occurrence: US)
  Receive Date: 20140317
  Receipt Date: 20140317
  Transmission Date: 20141002
  Serious: No
  Sender: FDA-Public Use
  Company Number: US-PFIZER INC-2014076565

PATIENT
  Age: 44 Year
  Sex: Female
  Weight: 99.77 kg

DRUGS (5)
  1. LYRICA [Suspect]
     Indication: FIBROMYALGIA
     Dosage: UNK
     Dates: end: 201401
  2. LYRICA [Suspect]
     Indication: DIABETIC NEUROPATHY
  3. AMLODIPINE [Concomitant]
     Indication: HYPERTENSION
     Dosage: 10 MG, DAILY
  4. METFORMIN [Concomitant]
     Indication: DIABETES MELLITUS
     Dosage: 500 MG, 2X/DAY
  5. LEVOTHYROXINE [Concomitant]
     Indication: THYROID DISORDER
     Dosage: 88 UG, DAILY

REACTIONS (6)
  - Arthralgia [Unknown]
  - Dyskinesia [Unknown]
  - Weight increased [Unknown]
  - Local swelling [Unknown]
  - Mobility decreased [Unknown]
  - Drug withdrawal syndrome [Unknown]
